FAERS Safety Report 8779986 (Version 1)
Quarter: 2012Q4

REPORT INFORMATION
  Report Type: Spontaneous
  Country: US (occurrence: None)
  Receive Date: 20120831
  Receipt Date: 20120831
  Transmission Date: 20130627
  Serious: Yes (Other)
  Sender: FDA-Public Use
  Company Number: None

PATIENT
  Age: 46 Year
  Sex: Female

DRUGS (2)
  1. PANTOPRAZOLE [Suspect]
     Route: 048
     Dates: start: 20120605, end: 20120829
  2. PANTOPRAZOLE [Suspect]
     Route: 048
     Dates: start: 20120605, end: 20120829

REACTIONS (2)
  - Middle insomnia [None]
  - Regurgitation [None]
